FAERS Safety Report 24579750 (Version 1)
Quarter: 2024Q4

REPORT INFORMATION
  Report Type: Spontaneous
  Country: FR (occurrence: FR)
  Receive Date: 20241105
  Receipt Date: 20241105
  Transmission Date: 20250115
  Serious: Yes (Life-Threatening, Hospitalization)
  Sender: RANBAXY
  Company Number: FR-SUN PHARMACEUTICAL INDUSTRIES LTD-2024RR-476809

PATIENT
  Age: 18 Year
  Sex: Female
  Weight: 45 kg

DRUGS (12)
  1. GEMCITABINE [Suspect]
     Active Substance: GEMCITABINE
     Indication: Hodgkin^s disease stage III
     Dosage: 1600 MILLIGRAM, 1DOSE/1CYCLIC
     Route: 040
     Dates: start: 20240119, end: 20240216
  2. DOXORUBICIN HYDROCHLORIDE [Suspect]
     Active Substance: DOXORUBICIN HYDROCHLORIDE
     Indication: Hodgkin^s disease stage III
     Dosage: 52 MILLIGRAM, 1DOSE/1CYCLIC
     Route: 040
     Dates: start: 20230505, end: 20240216
  3. CYCLOPHOSPHAMIDE [Suspect]
     Active Substance: CYCLOPHOSPHAMIDE
     Indication: Hodgkin^s disease stage III
     Dosage: 1800 MILLIGRAM, 1DOSE/1CYCLIC
     Route: 040
     Dates: start: 20230505, end: 20230828
  4. ETOPOPHOS [Suspect]
     Active Substance: ETOPOSIDE PHOSPHATE
     Indication: Hodgkin^s disease stage III
     Dosage: 290 MILLIGRAM, 1DOSE/1CYCLIC
     Route: 040
     Dates: start: 20230505, end: 20230830
  5. VINCRISTINE [Suspect]
     Active Substance: VINCRISTINE
     Indication: Hodgkin^s disease stage III
     Dosage: 1.3 MILLIGRAM, 1DOSE/1CYCLIC
     Route: 040
     Dates: start: 20230512, end: 20230904
  6. BLEOMYCIN SULFATE [Suspect]
     Active Substance: BLEOMYCIN SULFATE
     Indication: Hodgkin^s disease stage III
     Dosage: UNK
     Route: 040
     Dates: start: 20230512, end: 20230719
  7. NAVELBINE [Suspect]
     Active Substance: VINORELBINE TARTRATE
     Indication: Hodgkin^s disease stage III
     Dosage: 31.6 MILLIGRAM, 1DOSE/1CYCLIC
     Route: 040
     Dates: start: 20240119, end: 20240216
  8. OXALIPLATIN [Suspect]
     Active Substance: OXALIPLATIN
     Indication: Hodgkin^s disease stage III
     Dosage: 205 MILLIGRAM, 1DOSE/1CYCLIC
     Route: 040
     Dates: start: 20240429, end: 20240625
  9. CYTARABINE [Suspect]
     Active Substance: CYTARABINE
     Indication: Hodgkin^s disease stage III
     Dosage: 3200 MILLIGRAM, 1DOSE/1CYCLIC
     Route: 040
     Dates: start: 20240430, end: 20240626
  10. KEYTRUDA [Suspect]
     Active Substance: PEMBROLIZUMAB
     Indication: Hodgkin^s disease stage III
     Dosage: 200 MILLIGRAM, 1DOSE/1CYCLIC
     Route: 040
     Dates: start: 20240119, end: 20240402
  11. ADCETRIS [Suspect]
     Active Substance: BRENTUXIMAB VEDOTIN
     Indication: Hodgkin^s disease stage III
     Dosage: 104.4 MILLIGRAM, 1DOSE/1CYCLIC
     Route: 040
     Dates: start: 20240429, end: 20240625
  12. DEXAMETHASONE [Suspect]
     Active Substance: DEXAMETHASONE
     Indication: Hodgkin^s disease stage III
     Dosage: 40 MILLIGRAM, 1DOSE/1CYCLIC
     Route: 048
     Dates: start: 20240429, end: 20240628

REACTIONS (2)
  - Cardiac failure [Recovered/Resolved]
  - Condition aggravated [Recovered/Resolved]

NARRATIVE: CASE EVENT DATE: 20240229
